FAERS Safety Report 19470865 (Version 2)
Quarter: 2021Q2

REPORT INFORMATION
  Report Type: Spontaneous
  Country: US (occurrence: US)
  Receive Date: 20210629
  Receipt Date: 20210629
  Transmission Date: 20210717
  Serious: Yes (Other)
  Sender: FDA-Public Use
  Company Number: US-ALLERGAN-2111273US

PATIENT
  Age: 75 Year
  Sex: Female

DRUGS (2)
  1. DURYSTA [Suspect]
     Active Substance: BIMATOPROST
     Indication: GLAUCOMA
     Dosage: 0.01 MG, SINGLE
     Route: 031
     Dates: start: 20210310, end: 20210310
  2. DURYSTA [Suspect]
     Active Substance: BIMATOPROST
     Indication: GLAUCOMA
     Dosage: 0.01 MG, SINGLE
     Route: 031
     Dates: start: 20210224, end: 20210224

REACTIONS (1)
  - Corneal oedema [Unknown]

NARRATIVE: CASE EVENT DATE: 20210312
